FAERS Safety Report 5836048-X (Version None)
Quarter: 2008Q3

REPORT INFORMATION
  Report Type: 
  Country: None (occurrence: None)
  Receive Date: 20080805
  Receipt Date: 20080730
  Transmission Date: 20090109
  Serious: Yes (Hospitalization)
  Sender: FDA-Public Use
  Company Number: 08P-107-0467470-00

PATIENT
  Sex: Male

DRUGS (1)
  1. SYNAGIS [Suspect]
     Indication: PROPHYLAXIS
     Dosage: 15 MG/KG (15 MG/KG, 1 IN 1 M) INTRAMUSCULAR
     Route: 030
     Dates: start: 20080404, end: 20080404

REACTIONS (2)
  - NEONATAL DISORDER [None]
  - THROMBOCYTHAEMIA [None]
